FAERS Safety Report 6495617-7 (Version None)
Quarter: 2009Q4

REPORT INFORMATION
  Report Type: 
  Country: None (occurrence: None)
  Receive Date: 20091209
  Receipt Date: 20091124
  Transmission Date: 20100525
  Serious: Yes (Death)
  Sender: FDA-Public Use
  Company Number: 2009BM000250

PATIENT
  Age: 10 Year
  Sex: Female
  Weight: 16.1 kg

DRUGS (4)
  1. NAGLAZYME [Suspect]
     Indication: MUCOPOLYSACCHARIDOSIS VI
     Dosage: 0.93 MG/KG;QW;IVDRP
     Route: 041
     Dates: start: 20070611, end: 20091005
  2. NAGLAZYME [Suspect]
  3. NAGLAZYME [Suspect]
  4. NAGLAZYME [Suspect]

REACTIONS (4)
  - ACUTE RESPIRATORY DISTRESS SYNDROME [None]
  - BACTERIAL INFECTION [None]
  - CARDIO-RESPIRATORY ARREST [None]
  - PNEUMONIA [None]
